FAERS Safety Report 6680109-2 (Version None)
Quarter: 2010Q2

REPORT INFORMATION
  Report Type: 
  Country: None (occurrence: None)
  Receive Date: 20100413
  Receipt Date: 20100407
  Transmission Date: 20101027
  Serious: Yes (Hospitalization)
  Sender: FDA-Public Use
  Company Number: PHHO2010CO01730

PATIENT
  Sex: Male
  Weight: 70 kg

DRUGS (4)
  1. CERTICAN [Suspect]
     Indication: LIVER TRANSPLANT
     Dosage: 3 MG, BID
     Route: 048
     Dates: start: 20100114, end: 20100128
  2. CERTICAN [Suspect]
     Dosage: 3 MG AM, 2.75 MG PM
     Route: 048
     Dates: start: 20100316, end: 20100406
  3. PREDNISOLONE [Concomitant]
     Dosage: 15 MG, QD
     Route: 048
     Dates: start: 20091112
  4. PREDNISOLONE [Concomitant]
     Dosage: 20 MG, BID
     Route: 048
     Dates: start: 20100329

REACTIONS (4)
  - DISEASE PROGRESSION [None]
  - DRUG INEFFECTIVE [None]
  - HEPATIC ENZYME INCREASED [None]
  - TRANSPLANT REJECTION [None]
